FAERS Safety Report 5789014-7 (Version None)
Quarter: 2008Q2

REPORT INFORMATION
  Report Type: 
  Country: None (occurrence: None)
  Receive Date: 20080626
  Receipt Date: 20080623
  Transmission Date: 20081010
  Serious: Yes (Other)
  Sender: FDA-Public Use
  Company Number: A0721236A

PATIENT
  Age: 74 Year
  Sex: Male

DRUGS (7)
  1. DYNACIRC CR [Suspect]
     Indication: BLOOD PRESSURE
     Dosage: 10MG PER DAY
     Route: 048
     Dates: end: 20080209
  2. DYNACIRC CR [Suspect]
     Dosage: 20MG PER DAY
     Route: 048
     Dates: start: 20080210
  3. DYNACIRC CR [Suspect]
     Dosage: 10MG PER DAY
     Route: 048
     Dates: start: 20080211
  4. VITAMIN [Concomitant]
     Indication: DRUG USE FOR UNKNOWN INDICATION
  5. HYDROCHLOROTHIAZIDE [Concomitant]
     Indication: DRUG USE FOR UNKNOWN INDICATION
     Dates: end: 20071201
  6. METOPROLOL [Concomitant]
     Indication: DRUG USE FOR UNKNOWN INDICATION
     Dates: start: 20080101
  7. SIMVASTATIN [Concomitant]
     Indication: DRUG USE FOR UNKNOWN INDICATION

REACTIONS (6)
  - BLOOD CREATININE INCREASED [None]
  - INTENTIONAL DRUG MISUSE [None]
  - OEDEMA PERIPHERAL [None]
  - RENAL DISORDER [None]
  - THERAPEUTIC RESPONSE DECREASED [None]
  - TINNITUS [None]
